FAERS Safety Report 6649239-5 (Version None)
Quarter: 2010Q1

REPORT INFORMATION
  Report Type: 
  Country: None (occurrence: None)
  Receive Date: 20100324
  Receipt Date: 20100322
  Transmission Date: 20100710
  Serious: Yes (Life-Threatening, Hospitalization)
  Sender: FDA-Public Use
  Company Number: GB-TEVA-228376ISR

PATIENT
  Age: 80 Year
  Sex: Male

DRUGS (4)
  1. AMIODARONE [Suspect]
     Indication: SUPRAVENTRICULAR TACHYCARDIA
     Route: 048
     Dates: start: 20100121, end: 20100223
  2. OMEPRAZOLE [Suspect]
     Indication: BARRETT'S OESOPHAGUS
     Dates: start: 20100120, end: 20100223
  3. OMEPRAZOLE [Suspect]
     Indication: GASTRIC ULCER
  4. OMEPRAZOLE [Suspect]
     Indication: UPPER GASTROINTESTINAL HAEMORRHAGE

REACTIONS (1)
  - IDIOPATHIC THROMBOCYTOPENIC PURPURA [None]
